FAERS Safety Report 17466520 (Version 1)
Quarter: 2020Q1

REPORT INFORMATION
  Report Type: Spontaneous
  Country: GB (occurrence: GB)
  Receive Date: 20200227
  Receipt Date: 20200227
  Transmission Date: 20200409
  Serious: Yes (Disabling, Other)
  Sender: FDA-Public Use
  Company Number: GB-ABBVIE-20K-167-3291287-00

PATIENT
  Age: 39 Year
  Sex: Female
  Weight: 76.2 kg

DRUGS (2)
  1. LEVOTHYROXINE. [Concomitant]
     Active Substance: LEVOTHYROXINE
     Indication: PRODUCT USED FOR UNKNOWN INDICATION
  2. HUMIRA [Suspect]
     Active Substance: ADALIMUMAB
     Indication: ANKYLOSING SPONDYLITIS
     Dosage: CUMULATIVE DOSE TO FIRST REACTION WAS 27.928572
     Route: 058
     Dates: start: 20160506, end: 20190106

REACTIONS (12)
  - Butterfly rash [Recovering/Resolving]
  - Infection [Unknown]
  - Pyrexia [Unknown]
  - Abdominal fat apron [Unknown]
  - Lupus-like syndrome [Recovering/Resolving]
  - Pain in extremity [Unknown]
  - Fatigue [Unknown]
  - Arthralgia [Unknown]
  - Chills [Unknown]
  - Influenza like illness [Unknown]
  - Abnormal weight gain [Recovering/Resolving]
  - Kyphosis [Unknown]

NARRATIVE: CASE EVENT DATE: 201706
